FAERS Safety Report 5373800-1 (Version None)
Quarter: 2007Q2

REPORT INFORMATION
  Report Type: 
  Country: None (occurrence: None)
  Receive Date: 20070627
  Receipt Date: 20070306
  Transmission Date: 20071010
  Serious: Yes (Death)
  Sender: FDA-Public Use
  Company Number: 485773

PATIENT
  Age: 55 Year
  Sex: Female
  Weight: 55.8 kg

DRUGS (1)
  1. XELODA [Suspect]
     Indication: BREAST CANCER

REACTIONS (1)
  - BREAST CANCER METASTATIC [None]
